FAERS Safety Report 4737060-4 (Version None)
Quarter: 2005Q3

REPORT INFORMATION
  Report Type: 
  Country: None (occurrence: None)
  Receive Date: 20050808
  Receipt Date: 20050207
  Transmission Date: 20060218
  Serious: Yes (Other)
  Sender: FDA-Public Use
  Company Number: PHEH2005US01786

PATIENT
  Age: 57 Year
  Sex: Female

DRUGS (10)
  1. AREDIA [Suspect]
     Indication: MULTIPLE MYELOMA
     Dosage: 90 MG, QMO
     Dates: start: 19970801, end: 20040801
  2. VELCADE [Concomitant]
     Dates: start: 20040801, end: 20041101
  3. ZOMETA [Suspect]
     Indication: MULTIPLE MYELOMA
     Dosage: UNK, QMO
     Dates: start: 20040801, end: 20041101
  4. DEXAMETHASONE [Concomitant]
     Dosage: 40 X 4 DAYS
     Dates: start: 19971001, end: 19980201
  5. DEXAMETHASONE [Concomitant]
     Dosage: 40-32-24-16 X 4 DAYS
     Dates: start: 20040801, end: 20041001
  6. MEDROL [Concomitant]
     Dates: start: 20041001, end: 20041101
  7. VINCRISTINE + ADRIAMYCIN + DEXAMETHASONE [Concomitant]
     Dates: start: 19971001, end: 19980201
  8. INTERFERON ALFA [Concomitant]
     Dates: start: 19980401, end: 20000101
  9. THALIDOMIDE [Concomitant]
     Dates: start: 20010301, end: 20010601
  10. MELPHALAN [Concomitant]
     Indication: STEM CELL TRANSPLANT
     Dates: start: 20010701

REACTIONS (2)
  - OSTEONECROSIS [None]
  - SOFT TISSUE DISORDER [None]
